FAERS Safety Report 21296131 (Version 2)
Quarter: 2023Q1

REPORT INFORMATION
  Report Type: Report from Study
  Country: US (occurrence: US)
  Receive Date: 20220906
  Receipt Date: 20230223
  Transmission Date: 20230417
  Serious: Yes (Other)
  Sender: FDA-Public Use
  Company Number: US-BRISTOL-MYERS SQUIBB COMPANY-2022-098644

PATIENT
  Age: 65 Year
  Sex: Female
  Weight: 54.431 kg

DRUGS (1)
  1. REVLIMID [Suspect]
     Active Substance: LENALIDOMIDE
     Indication: Plasma cell myeloma
     Dosage: DOSE INCREASED FROM 5 MG TO 10 MG
     Route: 048
     Dates: start: 202005

REACTIONS (7)
  - Neuropathy peripheral [Not Recovered/Not Resolved]
  - Fatigue [Unknown]
  - Diarrhoea [Unknown]
  - Fall [Unknown]
  - Mass [Recovering/Resolving]
  - Insomnia [Unknown]
  - Injury [Unknown]

NARRATIVE: CASE EVENT DATE: 20220830
